FAERS Safety Report 7422567-1 (Version None)
Quarter: 2011Q2

REPORT INFORMATION
  Report Type: 
  Country: None (occurrence: None)
  Receive Date: 20110408
  Receipt Date: 20110325
  Transmission Date: 20111010
  Serious: Yes (Hospitalization)
  Sender: FDA-Public Use
  Company Number: 2010003276

PATIENT
  Age: 68 Year
  Sex: Female
  Weight: 39 kg

DRUGS (6)
  1. ERLOTINIB (ERLOTINIB) (TABLET) (ERLOTINIB) [Suspect]
     Indication: LUNG ADENOCARCINOMA
     Dosage: (150 MG, QD), ORAL
     Route: 048
     Dates: start: 20090422, end: 20090728
  2. MAGNESIUM OXIDE (MAGNESIUM OXIDE) [Concomitant]
  3. NAIXAN (NAPROXEN SODIUM) [Concomitant]
  4. CYTOTEC [Concomitant]
  5. MYSLEE (ZOLPIDEM TARTRATE) [Concomitant]
  6. PREDNISOLONE [Concomitant]

REACTIONS (7)
  - PLATELET COUNT DECREASED [None]
  - NEOPLASM PROGRESSION [None]
  - NON-SMALL CELL LUNG CANCER METASTATIC [None]
  - IDIOPATHIC THROMBOCYTOPENIC PURPURA [None]
  - ASPARTATE AMINOTRANSFERASE INCREASED [None]
  - ANTI-PLATELET ANTIBODY POSITIVE [None]
  - RASH [None]
